FAERS Safety Report 5209698-1 (Version None)
Quarter: 2006Q4

REPORT INFORMATION
  Report Type: 
  Country: None (occurrence: None)
  Receive Date: 20061116
  Receipt Date: 20051220
  Transmission Date: 20070319
  Serious: Yes (Other)
  Sender: FDA-Public Use
  Company Number: 23383

PATIENT
  Age: 33 Year
  Sex: Female
  Weight: 58.9676 kg

DRUGS (2)
  1. CISPLATIN [Suspect]
  2. NAPROSYN [Concomitant]

REACTIONS (3)
  - FLUSHING [None]
  - PAIN [None]
  - UNEVALUABLE EVENT [None]
